FAERS Safety Report 7442138-0 (Version None)
Quarter: 2011Q2

REPORT INFORMATION
  Report Type: 
  Country: None (occurrence: None)
  Receive Date: 20110420
  Receipt Date: 20110408
  Transmission Date: 20111010
  Serious: Yes (Other)
  Sender: FDA-Public Use
  Company Number: JP-2011-10364

PATIENT
  Age: 59 Year
  Sex: Female
  Weight: 41 kg

DRUGS (3)
  1. CILOSTAZOL [Suspect]
     Indication: CEREBRAL INFARCTION
     Dosage: 50 MG MILLIGRAM(S), QPM, ORAL
     Route: 048
     Dates: start: 20110122, end: 20110123
  2. MEXILETINE HYDROCHLORIDE (MEXILETINE HYDROCHLORIDE) [Concomitant]
  3. VERAPAMIL HYDROCHLORIDE [Concomitant]

REACTIONS (1)
  - ALOPECIA TOTALIS [None]
